FAERS Safety Report 8071346 (Version 2)
Quarter: 2013Q4

REPORT INFORMATION
  Report Type: Spontaneous
  Country: US (occurrence: US)
  Receive Date: 20110805
  Receipt Date: 20131125
  Transmission Date: 20140711
  Serious: Yes (Other)
  Sender: FDA-Public Use
  Company Number: US-JNJFOC-20110801157

PATIENT
  Age: 49 Year
  Sex: Female
  Weight: 110.68 kg

DRUGS (2)
  1. DURAGESIC [Suspect]
     Indication: MIGRAINE
     Route: 062
     Dates: start: 201104
  2. STADOL [Concomitant]
     Indication: MIGRAINE
     Route: 055
     Dates: start: 200804

REACTIONS (5)
  - Tooth abscess [Not Recovered/Not Resolved]
  - Off label use [Not Recovered/Not Resolved]
  - Drug ineffective [Not Recovered/Not Resolved]
  - Product quality issue [Not Recovered/Not Resolved]
  - Wrong technique in drug usage process [Not Recovered/Not Resolved]
